FAERS Safety Report 13550170 (Version 1)
Quarter: 2017Q2

REPORT INFORMATION
  Report Type: Report from Study
  Country: CO (occurrence: CO)
  Receive Date: 20170516
  Receipt Date: 20170516
  Transmission Date: 20170830
  Serious: Yes (Hospitalization, Other)
  Sender: FDA-Public Use
  Company Number: CO-ELI_LILLY_AND_COMPANY-CO201703009989

PATIENT
  Age: 59 Year
  Sex: Male

DRUGS (1)
  1. CETUXIMAB. [Suspect]
     Active Substance: CETUXIMAB
     Indication: SQUAMOUS CELL CARCINOMA OF HEAD AND NECK
     Dosage: 250 MG, WEEKLY (1/W)
     Route: 065
     Dates: start: 20160714

REACTIONS (8)
  - Dyspepsia [Unknown]
  - Weight decreased [Unknown]
  - Eating disorder [Recovering/Resolving]
  - Gait disturbance [Recovering/Resolving]
  - General physical health deterioration [Unknown]
  - Pain [Unknown]
  - Decreased appetite [Unknown]
  - Radiation mucositis [Unknown]
